FAERS Safety Report 9698652 (Version 3)
Quarter: 2014Q4

REPORT INFORMATION
  Report Type: Spontaneous
  Country: US (occurrence: US)
  Receive Date: 20131120
  Receipt Date: 20141015
  Transmission Date: 20150529
  Serious: Yes (Life-Threatening, Hospitalization, Other)
  Sender: FDA-Public Use
  Company Number: US-BAYER-2013-140482

PATIENT
  Age: 19 Year
  Sex: Female
  Weight: 62.59 kg

DRUGS (4)
  1. SUBOXONE [Concomitant]
     Active Substance: BUPRENORPHINE HYDROCHLORIDE\NALOXONE HYDROCHLORIDE
     Dosage: UNK
     Dates: start: 200608
  2. CLONOPIN [Concomitant]
     Active Substance: CLONAZEPAM
     Dosage: UNK
     Dates: start: 200608
  3. KLONOPIN [Concomitant]
     Active Substance: CLONAZEPAM
     Dosage: 1 MG, UNK
     Route: 048
  4. MIRENA [Suspect]
     Active Substance: LEVONORGESTREL
     Indication: CONTRACEPTION
     Dosage: 20 MCG/24HR, CONT
     Route: 015
     Dates: start: 2008, end: 20091008

REACTIONS (11)
  - Anxiety [None]
  - Device dislocation [None]
  - Pelvic inflammatory disease [None]
  - Emotional distress [None]
  - Injury [None]
  - Anhedonia [None]
  - Genital haemorrhage [None]
  - Abdominal pain lower [None]
  - Device defective [None]
  - Abdominal pain upper [None]
  - General physical health deterioration [None]

NARRATIVE: CASE EVENT DATE: 2009
